FAERS Safety Report 6384770-1 (Version None)
Quarter: 2009Q4

REPORT INFORMATION
  Report Type: 
  Country: None (occurrence: None)
  Receive Date: 20091001
  Receipt Date: 20090924
  Transmission Date: 20100525
  Serious: Yes (Hospitalization, Other)
  Sender: FDA-Public Use
  Company Number: US-ABBOTT-09P-163-0599844-00

PATIENT
  Sex: Female
  Weight: 79.904 kg

DRUGS (3)
  1. HUMIRA [Suspect]
     Indication: RHEUMATOID ARTHRITIS
     Route: 058
     Dates: start: 20060101, end: 20080802
  2. HUMIRA [Suspect]
     Route: 058
     Dates: start: 20080901, end: 20090721
  3. HUMIRA [Suspect]
     Route: 058
     Dates: start: 20090914, end: 20090921

REACTIONS (11)
  - ANKLE FRACTURE [None]
  - EXOSTOSIS [None]
  - FIBULA FRACTURE [None]
  - INFLAMMATION [None]
  - JOINT SWELLING [None]
  - LIMB DEFORMITY [None]
  - LIMB TRAUMATIC AMPUTATION [None]
  - LOCALISED INFECTION [None]
  - ROAD TRAFFIC ACCIDENT [None]
  - SKIN LACERATION [None]
  - TRAUMATIC BRAIN INJURY [None]
